FAERS Safety Report 16854481 (Version 1)
Quarter: 2019Q3

REPORT INFORMATION
  Report Type: Spontaneous
  Country: US (occurrence: US)
  Receive Date: 20190805
  Receipt Date: 20190805
  Transmission Date: 20191005
  Serious: Yes (Other)
  Sender: FDA-Public Use
  Company Number: None

PATIENT
  Age: 88 Year
  Sex: Female

DRUGS (3)
  1. RANITIDINE 150MG BID [Suspect]
     Active Substance: RANITIDINE
  2. VANC 1G IV X 1 DOSE [Suspect]
     Active Substance: VANCOMYCIN
  3. CEFEPIME [Suspect]
     Active Substance: CEFEPIME HYDROCHLORIDE
     Route: 042

REACTIONS (3)
  - Drug trough level [None]
  - Clostridium difficile infection [None]
  - Drug level increased [None]

NARRATIVE: CASE EVENT DATE: 20180227
